FAERS Safety Report 8472843 (Version 2)
Quarter: 2012Q4

REPORT INFORMATION
  Report Type: Report from Study
  Country: US (occurrence: US)
  Receive Date: 20120322
  Receipt Date: 20120923
  Transmission Date: 20130627
  Serious: Yes (Hospitalization)
  Sender: FDA-Public Use
  Company Number: US-BRISTOL-MYERS SQUIBB COMPANY-13424346

PATIENT
  Age: 59 Year
  Sex: Female

DRUGS (6)
  1. IPILIMUMAB [Suspect]
     Indication: MALIGNANT MELANOMA
     Route: 042
     Dates: start: 20060411, end: 20060613
  2. BUDESONIDE [Suspect]
     Indication: MALIGNANT MELANOMA
     Route: 048
     Dates: start: 20060411, end: 20060613
  3. WELLBUTRIN SR [Concomitant]
     Route: 048
  4. SYNTHROID [Concomitant]
     Route: 048
  5. CORTEF [Concomitant]
     Route: 048
  6. FLUDROCORTISONE [Concomitant]
     Route: 048

REACTIONS (3)
  - Hypopituitarism [Recovered/Resolved]
  - Autoimmune hepatitis [Recovered/Resolved]
  - Colitis [Recovered/Resolved]
